FAERS Safety Report 7990963-X (Version None)
Quarter: 2011Q4

REPORT INFORMATION
  Report Type: 
  Country: None (occurrence: None)
  Receive Date: 20111219
  Receipt Date: 20111215
  Transmission Date: 20120403
  Serious: Yes (Hospitalization)
  Sender: FDA-Public Use
  Company Number: DE-ROCHE-1022692

PATIENT
  Sex: Female
  Weight: 78.6 kg

DRUGS (1)
  1. AVASTIN [Suspect]
     Indication: BREAST CANCER METASTATIC

REACTIONS (2)
  - GENERAL PHYSICAL HEALTH DETERIORATION [None]
  - CEREBRAL ISCHAEMIA [None]
